FAERS Safety Report 4854466-3 (Version None)
Quarter: 2005Q4

REPORT INFORMATION
  Report Type: 
  Country: None (occurrence: None)
  Receive Date: 20051213
  Receipt Date: 20051201
  Transmission Date: 20060501
  Serious: Yes (Hospitalization)
  Sender: FDA-Public Use
  Company Number: 2005163776

PATIENT
  Sex: Female
  Weight: 83.3 kg

DRUGS (13)
  1. AROMASIN [Suspect]
     Indication: BREAST CANCER
     Dosage: 25 MG (25 MG, 1 IN 1 D) ORAL
     Route: 048
     Dates: start: 20030915
  2. JODID (POTASSIUM IODIDE) [Concomitant]
  3. NEBIVOLOL HCL [Concomitant]
  4. MOXONIDINE [Concomitant]
  5. OMEP (OMEPRAZOLE) [Concomitant]
  6. CALCIUM (CALCIUM) [Concomitant]
  7. PROTAPHAN (INSULIN ISOPHANE, HUMAN BIOSYNTHETIC) [Concomitant]
  8. HUMALOG [Concomitant]
  9. METFORMIN [Concomitant]
  10. CARMEN (LERCANIDIPINE) [Concomitant]
  11. ENALAPRIL [Concomitant]
  12. TROMLIPON (THIOCTIC ACID) [Concomitant]
  13. VIGANTOLETTEN ^BAYER^ (COLECALCIFEROL) [Concomitant]

REACTIONS (3)
  - BLOOD GLUCOSE ABNORMAL [None]
  - BLOOD GLUCOSE INCREASED [None]
  - GLYCOSYLATED HAEMOGLOBIN INCREASED [None]
